FAERS Safety Report 10916987 (Version 2)
Quarter: 2015Q2

REPORT INFORMATION
  Report Type: Spontaneous
  Country: US (occurrence: US)
  Receive Date: 20150316
  Receipt Date: 20150524
  Transmission Date: 20150821
  Serious: No
  Sender: FDA-Public Use
  Company Number: US-JNJFOC-20141017964

PATIENT
  Sex: Male
  Weight: 111.13 kg

DRUGS (18)
  1. ZYTIGA [Suspect]
     Active Substance: ABIRATERONE ACETATE
     Indication: PROSTATE CANCER
     Route: 048
     Dates: start: 20140729
  2. REQUIP [Concomitant]
     Active Substance: ROPINIROLE HYDROCHLORIDE
     Indication: RESTLESS LEGS SYNDROME
     Route: 048
  3. CACIT VITAMINE D3 [Concomitant]
     Active Substance: CALCIUM CARBONATE\CHOLECALCIFEROL
     Route: 048
  4. POTASSIUM [Concomitant]
     Active Substance: POTASSIUM
     Indication: MUSCLE SPASMS
     Dates: start: 2004
  5. LOSARTAN [Concomitant]
     Active Substance: LOSARTAN
     Indication: BLOOD TRIGLYCERIDES
     Route: 048
  6. FISH OIL [Concomitant]
     Active Substance: FISH OIL
     Indication: GENERAL PHYSICAL CONDITION
  7. LEVOTHYROXINE [Concomitant]
     Active Substance: LEVOTHYROXINE
     Indication: HYPOTHYROIDISM
     Route: 048
  8. ASPIRIN. [Concomitant]
     Active Substance: ASPIRIN
     Route: 048
  9. VITAMIN C [Concomitant]
     Active Substance: ASCORBIC ACID
     Route: 048
  10. PRAVASTATIN [Concomitant]
     Active Substance: PRAVASTATIN\PRAVASTATIN SODIUM
     Indication: BLOOD TRIGLYCERIDES
     Route: 048
  11. GEMFIBROZIL. [Concomitant]
     Active Substance: GEMFIBROZIL
     Indication: HYPERLIPIDAEMIA
     Route: 048
     Dates: start: 20120729
  12. PREDNISONE. [Concomitant]
     Active Substance: PREDNISONE
     Route: 048
  13. CALCIUM [Concomitant]
     Active Substance: CALCIUM
     Route: 048
  14. CHROMIUM PICOLINATE [Concomitant]
     Active Substance: CHROMIUM PICOLINATE
     Indication: DIABETES MELLITUS
     Route: 048
  15. MAGNESIUM [Concomitant]
     Active Substance: MAGNESIUM
     Indication: NUTRITIONAL SUPPLEMENTATION
     Route: 048
  16. AMLODIPINE BESYLATE. [Concomitant]
     Active Substance: AMLODIPINE BESYLATE
     Indication: CARDIAC DISORDER
     Route: 048
     Dates: start: 2012
  17. IRON [Concomitant]
     Active Substance: IRON
     Route: 048
  18. ALBUTEROL. [Concomitant]
     Active Substance: ALBUTEROL
     Indication: ASTHMA
     Route: 048
     Dates: start: 1999

REACTIONS (7)
  - Muscle spasms [Not Recovered/Not Resolved]
  - Pain in extremity [Not Recovered/Not Resolved]
  - Sleep disorder [Not Recovered/Not Resolved]
  - Walking aid user [Recovering/Resolving]
  - Fall [Unknown]
  - Incorrect dosage administered [Not Recovered/Not Resolved]
  - Gait disturbance [Not Recovered/Not Resolved]
